FAERS Safety Report 6198140-2 (Version None)
Quarter: 2009Q2

REPORT INFORMATION
  Report Type: 
  Country: None (occurrence: None)
  Receive Date: 20090521
  Receipt Date: 20090515
  Transmission Date: 20091009
  Serious: Yes (Hospitalization)
  Sender: FDA-Public Use
  Company Number: IT-ROCHE-613761

PATIENT
  Sex: Female
  Weight: 76 kg

DRUGS (3)
  1. CAPECITABINE [Suspect]
     Dosage: TEMPORARY STOP FOR UNKNOWN DAYS.
     Route: 048
     Dates: start: 20090119
  2. BEVACIZUMAB [Suspect]
     Dosage: FORM: VIALS, LAST DAILY DOSE: 19 JAN 2009; TEMPORARY STOP FOR UNKNOWN DAYS.
     Route: 042
     Dates: start: 20090119
  3. TAXOTERE [Suspect]
     Dosage: TEMPORARY STOP FOR UNKNOWN DAYS.
     Route: 042
     Dates: start: 20090119

REACTIONS (3)
  - ABDOMINAL PAIN [None]
  - DIARRHOEA [None]
  - SUBILEUS [None]
